FAERS Safety Report 19320665 (Version 1)
Quarter: 2021Q2

REPORT INFORMATION
  Report Type: Spontaneous
  Country: KR (occurrence: KR)
  Receive Date: 20210527
  Receipt Date: 20210527
  Transmission Date: 20210717
  Serious: Yes (Life-Threatening)
  Sender: FDA-Public Use
  Company Number: KR-FRESENIUS KABI-FK202105349

PATIENT
  Age: 31 Year
  Sex: Female

DRUGS (4)
  1. DEXMEDETOMIDINE (MANUFACTURER UNKNOWN) [Suspect]
     Active Substance: DEXMEDETOMIDINE
     Indication: IRRITABILITY
     Route: 065
  2. DEXMEDETOMIDINE (MANUFACTURER UNKNOWN) [Suspect]
     Active Substance: DEXMEDETOMIDINE
     Indication: SEDATIVE THERAPY
     Route: 065
  3. DOPAMINE [Concomitant]
     Active Substance: DOPAMINE HYDROCHLORIDE
     Indication: PRODUCT USED FOR UNKNOWN INDICATION
     Route: 065
  4. NOREPINEPHRINE. [Concomitant]
     Active Substance: NOREPINEPHRINE
     Indication: HYPOTENSION
     Route: 065

REACTIONS (3)
  - Cardiac arrest [Recovered/Resolved]
  - Hypotension [Recovered/Resolved]
  - Ischaemic stroke [Recovered/Resolved]
